FAERS Safety Report 18646747 (Version 1)
Quarter: 2020Q4

REPORT INFORMATION
  Report Type: Report from Study
  Country: US (occurrence: US)
  Receive Date: 20201222
  Receipt Date: 20201222
  Transmission Date: 20210114
  Serious: Yes (Hospitalization)
  Sender: FDA-Public Use
  Company Number: US-EMD SERONO-9206952

PATIENT
  Age: 74 Year
  Sex: Female

DRUGS (2)
  1. REBIF [Suspect]
     Active Substance: INTERFERON BETA-1A
     Indication: PRODUCT USED FOR UNKNOWN INDICATION
     Route: 058
     Dates: start: 20090807
  2. MIRALAX [Suspect]
     Active Substance: POLYETHYLENE GLYCOL 3350
     Indication: CONSTIPATION

REACTIONS (11)
  - Bowel movement irregularity [Unknown]
  - Constipation [Unknown]
  - Treatment noncompliance [Unknown]
  - Sensory loss [Unknown]
  - Urosepsis [Unknown]
  - Discomfort [Unknown]
  - Urinary tract infection [Unknown]
  - Device related infection [Unknown]
  - Retching [Unknown]
  - Ureteral catheterisation [Unknown]
  - Diarrhoea [Unknown]

NARRATIVE: CASE EVENT DATE: 2019
